FAERS Safety Report 20422982 (Version 3)
Quarter: 2022Q2

REPORT INFORMATION
  Report Type: Report from Study
  Country: CA (occurrence: CA)
  Receive Date: 20220203
  Receipt Date: 20220428
  Transmission Date: 20220721
  Serious: Yes (Other)
  Sender: FDA-Public Use
  Company Number: CA-JNJFOC-20220158098

PATIENT
  Sex: Female

DRUGS (2)
  1. REMICADE [Suspect]
     Active Substance: INFLIXIMAB
     Indication: Crohn^s disease
     Dosage: THERAPY STARTED DATE ALSO REPORTED AS 25/MAR/2021?ON 26-MAR-2022, THE PATIENT RECEIVED 16TH 500 MG O
     Route: 042
     Dates: start: 20210218
  2. METHOTREXATE [Concomitant]
     Active Substance: METHOTREXATE
     Indication: Product used for unknown indication
     Route: 048

REACTIONS (2)
  - Crohn^s disease [Recovering/Resolving]
  - Gastrointestinal scarring [Unknown]
